FAERS Safety Report 6228660-3 (Version None)
Quarter: 2009Q2

REPORT INFORMATION
  Report Type: 
  Country: None (occurrence: None)
  Receive Date: 20090614
  Receipt Date: 20090604
  Transmission Date: 20091009
  Serious: Yes (Death, Other)
  Sender: FDA-Public Use
  Company Number: PHHY2009JP20738

PATIENT
  Age: 59 Year
  Sex: Male

DRUGS (4)
  1. CYCLOSPORINE [Suspect]
     Indication: STEM CELL TRANSPLANT
     Dosage: UNK
     Dates: start: 20030901
  2. L-PAM [Concomitant]
  3. FLUDARABINE PHOSPHATE [Concomitant]
  4. THALIDOMIDE [Concomitant]
     Indication: PLASMACYTOMA
     Dosage: 200 MG/DAY
     Route: 048

REACTIONS (6)
  - ACUTE GRAFT VERSUS HOST DISEASE IN SKIN [None]
  - ASTHENIA [None]
  - CHRONIC GRAFT VERSUS HOST DISEASE [None]
  - MYELOMA RECURRENCE [None]
  - NEUROPATHY PERIPHERAL [None]
  - PLASMACYTOMA [None]
